FAERS Safety Report 21785613 (Version 1)
Quarter: 2022Q4

REPORT INFORMATION
  Report Type: Report from Study
  Country: US (occurrence: US)
  Receive Date: 20221227
  Receipt Date: 20221227
  Transmission Date: 20230113
  Serious: No
  Sender: FDA-Public Use
  Company Number: US-ABBVIE-4250602

PATIENT
  Sex: Male

DRUGS (1)
  1. VENCLEXTA [Suspect]
     Active Substance: VENETOCLAX
     Indication: Acute myeloid leukaemia
     Dosage: WITH 8 OUNCES OF WATER WITHIN 1/2HR AND DURATION DAYS 1-10
     Route: 048

REACTIONS (3)
  - Fatigue [Unknown]
  - Blood bilirubin increased [Unknown]
  - Diarrhoea [Unknown]
